FAERS Safety Report 7594761-0 (Version None)
Quarter: 2011Q3

REPORT INFORMATION
  Report Type: 
  Country: None (occurrence: None)
  Receive Date: 20110707
  Receipt Date: 20110701
  Transmission Date: 20111222
  Serious: Yes (Other)
  Sender: FDA-Public Use
  Company Number: US-SANOFI-AVENTIS-2011SA019352

PATIENT
  Age: 47 Year
  Sex: Female
  Weight: 82 kg

DRUGS (17)
  1. FLEXERIL [Concomitant]
  2. CORTICOSTEROID NOS [Concomitant]
  3. PLAQUENIL [Suspect]
     Route: 048
     Dates: start: 19980101
  4. ELAVIL [Concomitant]
     Indication: PAIN
  5. ESOMEPRAZOLE MAGNESIUM [Concomitant]
  6. POTASSIUM [Concomitant]
  7. CELEBREX [Concomitant]
  8. DIURETICS [Concomitant]
  9. HORMONES AND RELATED AGENTS [Concomitant]
  10. PLAQUENIL [Suspect]
     Route: 048
     Dates: start: 20081201, end: 20100101
  11. VALIUM [Concomitant]
  12. PLAQUENIL [Suspect]
     Route: 048
     Dates: end: 20060101
  13. NEURONTIN [Concomitant]
  14. ANTIHYPERTENSIVES [Concomitant]
  15. PLAQUENIL [Suspect]
     Route: 048
     Dates: end: 20010101
  16. PLAQUENIL [Suspect]
     Route: 048
     Dates: start: 20030101, end: 20030101
  17. VICODIN [Concomitant]

REACTIONS (6)
  - COUGH [None]
  - PHOTOPHOBIA [None]
  - EYE DISORDER [None]
  - VISUAL IMPAIRMENT [None]
  - VISION BLURRED [None]
  - LOSS OF CONSCIOUSNESS [None]
